FAERS Safety Report 16021167 (Version 1)
Quarter: 2019Q1

REPORT INFORMATION
  Report Type: Spontaneous
  Country: US (occurrence: US)
  Receive Date: 20190301
  Receipt Date: 20190301
  Transmission Date: 20190418
  Serious: Yes (Other)
  Sender: FDA-Public Use
  Company Number: US-ACCORD-110210

PATIENT
  Sex: Female

DRUGS (1)
  1. HYDROCHLOROTHIAZIDE. [Suspect]
     Active Substance: HYDROCHLOROTHIAZIDE
     Indication: PRODUCT USED FOR UNKNOWN INDICATION
     Dosage: STRENGTH: 25 MG
     Dates: start: 201806

REACTIONS (8)
  - Cough [Recovered/Resolved]
  - Inflammation [Recovering/Resolving]
  - Somnolence [Recovered/Resolved]
  - Anaemia [Recovered/Resolved]
  - Wrong technique in product usage process [Unknown]
  - Fatigue [Recovered/Resolved]
  - Dyspnoea [Recovered/Resolved]
  - Bone marrow toxicity [Recovered/Resolved]
